FAERS Safety Report 23516066 (Version 2)
Quarter: 2024Q1

REPORT INFORMATION
  Report Type: Report from Study
  Country: IT (occurrence: IT)
  Receive Date: 20240213
  Receipt Date: 20240314
  Transmission Date: 20240409
  Serious: Yes (Other)
  Sender: FDA-Public Use
  Company Number: IT-SUN PHARMACEUTICAL INDUSTRIES LTD-2024R1-429026

PATIENT
  Age: 81 Year
  Sex: Female
  Weight: 57 kg

DRUGS (4)
  1. LACOSAMIDE [Suspect]
     Active Substance: LACOSAMIDE
     Indication: Partial seizures
     Dosage: UNK
     Route: 065
  2. DABIGATRAN [Interacting]
     Active Substance: DABIGATRAN
     Indication: Anticoagulant therapy
     Dosage: UNK
     Route: 048
  3. ATORVASTATIN [Concomitant]
     Active Substance: ATORVASTATIN
     Indication: Anticoagulant therapy
     Dosage: UNK
     Route: 048
  4. FLECAINIDE [Concomitant]
     Active Substance: FLECAINIDE
     Indication: Anticoagulant therapy
     Dosage: UNK
     Route: 048

REACTIONS (3)
  - Ischaemic stroke [Unknown]
  - Drug level decreased [Unknown]
  - Drug interaction [Unknown]
